FAERS Safety Report 8207616-5 (Version None)
Quarter: 2012Q1

REPORT INFORMATION
  Report Type: 
  Country: None (occurrence: None)
  Receive Date: 20120314
  Receipt Date: 20120314
  Transmission Date: 20120608
  Serious: Yes (Other)
  Sender: FDA-Public Use
  Company Number: None

PATIENT
  Age: 48 Year
  Sex: Female
  Weight: 101.2 kg

DRUGS (2)
  1. TAMOXIFEN CITRATE [Suspect]
     Indication: BREAST CANCER
     Dosage: 20.0 MG
     Route: 048
     Dates: start: 20090402, end: 20120225
  2. TAMOXIFEN CITRATE [Concomitant]
     Dosage: 20

REACTIONS (3)
  - PRODUCT SUBSTITUTION ISSUE [None]
  - PRURITUS [None]
  - DRUG HYPERSENSITIVITY [None]
